FAERS Safety Report 7481321-5 (Version None)
Quarter: 2011Q2

REPORT INFORMATION
  Report Type: 
  Country: None (occurrence: None)
  Receive Date: 20110516
  Receipt Date: 20110506
  Transmission Date: 20111010
  Serious: Yes (Other)
  Sender: FDA-Public Use
  Company Number: PHHY2011BR39027

PATIENT
  Sex: Male

DRUGS (1)
  1. EXFORGE [Suspect]
     Indication: HYPERTENSION
     Dosage: 1 DF, (160/5 MG) DAILY
     Route: 049

REACTIONS (6)
  - HEAD INJURY [None]
  - CEREBROVASCULAR ACCIDENT [None]
  - THROMBOSIS [None]
  - BALANCE DISORDER [None]
  - FALL [None]
  - CONFUSIONAL STATE [None]
